FAERS Safety Report 6463324-2 (Version None)
Quarter: 2009Q4

REPORT INFORMATION
  Report Type: 
  Country: None (occurrence: None)
  Receive Date: 20091130
  Receipt Date: 20090713
  Transmission Date: 20100525
  Serious: Yes (Hospitalization, Other)
  Sender: FDA-Public Use
  Company Number: US-AMGEN-TCS339746

PATIENT
  Sex: Male
  Weight: 124.4 kg

DRUGS (3)
  1. ENBREL [Suspect]
     Indication: RHEUMATOID ARTHRITIS
     Route: 058
     Dates: start: 20030717, end: 20090101
  2. METHOTREXATE [Concomitant]
     Dates: start: 20031215, end: 20060201
  3. ARAVA [Concomitant]
     Dates: start: 20050510, end: 20090101

REACTIONS (5)
  - GASTROINTESTINAL HAEMORRHAGE [None]
  - INTERSTITIAL LUNG DISEASE [None]
  - LYMPHOMA [None]
  - MYOCARDIAL INFARCTION [None]
  - NASOPHARYNGITIS [None]
